FAERS Safety Report 24104184 (Version 1)
Quarter: 2024Q3

REPORT INFORMATION
  Report Type: Report from Study
  Country: US (occurrence: US)
  Receive Date: 20240717
  Receipt Date: 20240717
  Transmission Date: 20241016
  Serious: Yes (Other)
  Sender: ABBVIE
  Company Number: US-ABBVIE-5840672

PATIENT
  Sex: Female

DRUGS (1)
  1. RINVOQ [Suspect]
     Active Substance: UPADACITINIB
     Indication: Crohn^s disease
     Route: 048
     Dates: start: 20240424, end: 20240712

REACTIONS (3)
  - Ileostomy [Unknown]
  - Drug ineffective [Unknown]
  - Malabsorption [Unknown]

NARRATIVE: CASE EVENT DATE: 20240101
